FAERS Safety Report 15392236 (Version 1)
Quarter: 2018Q3

REPORT INFORMATION
  Report Type: Spontaneous
  Country: US (occurrence: US)
  Receive Date: 20180910
  Receipt Date: 20180910
  Transmission Date: 20181010
  Serious: No
  Sender: FDA-Public Use
  Company Number: None

PATIENT
  Age: 49 Year
  Sex: Female

DRUGS (1)
  1. ORKAMBI [Suspect]
     Active Substance: IVACAFTOR\LUMACAFTOR
     Dates: start: 201809

REACTIONS (5)
  - Insomnia [None]
  - Pyrexia [None]
  - Diarrhoea [None]
  - Influenza like illness [None]
  - Chest discomfort [None]

NARRATIVE: CASE EVENT DATE: 20180903
